FAERS Safety Report 11770398 (Version 2)
Quarter: 2015Q4

REPORT INFORMATION
  Report Type: Spontaneous
  Country: US (occurrence: US)
  Receive Date: 20151123
  Receipt Date: 20151123
  Transmission Date: 20160304
  Serious: No
  Sender: FDA-Public Use
  Company Number: US-PERRIGO-15US005017

PATIENT
  Age: 66 Year
  Sex: Female
  Weight: 59.86 kg

DRUGS (2)
  1. POLYETHYLENE GLYCOL 3350. [Suspect]
     Active Substance: POLYETHYLENE GLYCOL 3350
     Dosage: 16 G TO 17 G, QD
     Route: 048
     Dates: start: 201505, end: 20150513
  2. POLYETHYLENE GLYCOL 3350. [Suspect]
     Active Substance: POLYETHYLENE GLYCOL 3350
     Indication: CONSTIPATION
     Dosage: 16 G TO 17 G, QD
     Route: 048
     Dates: start: 201405, end: 201505

REACTIONS (4)
  - Underdose [Recovered/Resolved]
  - Bladder pain [Unknown]
  - Incorrect drug administration duration [Recovered/Resolved]
  - Wrong technique in product usage process [Recovered/Resolved]

NARRATIVE: CASE EVENT DATE: 201405
